FAERS Safety Report 4305190-7 (Version None)
Quarter: 2004Q1

REPORT INFORMATION
  Report Type: 
  Country: None (occurrence: None)
  Receive Date: 20040226
  Receipt Date: 20011127
  Transmission Date: 20041129
  Serious: Yes (Hospitalization)
  Sender: FDA-Public Use
  Company Number: JP-GLAXOSMITHKLINE-B0128142A

PATIENT
  Age: 41 Year
  Sex: Male

DRUGS (6)
  1. ABACAVIR SULFATE [Suspect]
     Indication: HIV INFECTION
     Dosage: 300MG TWICE PER DAY
     Route: 048
     Dates: start: 20000124, end: 20001208
  2. COMBIVIR [Suspect]
     Indication: HIV INFECTION
     Dosage: 1TAB TWICE PER DAY
     Route: 048
     Dates: start: 20010213, end: 20010701
  3. STAVUDINE [Suspect]
     Indication: HIV INFECTION
     Dosage: 80MG PER DAY
     Route: 048
     Dates: start: 19991101, end: 20001208
  4. DIDANOSINE [Suspect]
     Indication: HIV INFECTION
     Dosage: 400MG PER DAY
     Route: 048
     Dates: start: 20000110, end: 20001208
  5. EFAVIRENZ [Suspect]
     Indication: HIV INFECTION
     Dosage: 600MG PER DAY
     Route: 048
     Dates: start: 20000110
  6. KALETRA [Suspect]
     Indication: HIV INFECTION
     Route: 065
     Dates: start: 20010701

REACTIONS (14)
  - ABDOMINAL PAIN [None]
  - BLOOD AMYLASE INCREASED [None]
  - BLOOD LACTIC ACID INCREASED [None]
  - HAEMODIALYSIS [None]
  - HYPERLACTACIDAEMIA [None]
  - HYPOAESTHESIA [None]
  - LACTIC ACIDOSIS [None]
  - MITOCHONDRIAL TOXICITY [None]
  - MYALGIA [None]
  - NERVOUS SYSTEM DISORDER [None]
  - NEUROPATHY PERIPHERAL [None]
  - OEDEMA [None]
  - PANCREATITIS [None]
  - RENAL FAILURE ACUTE [None]
